FAERS Safety Report 25195281 (Version 1)
Quarter: 2025Q2

REPORT INFORMATION
  Report Type: Spontaneous
  Country: FR (occurrence: FR)
  Receive Date: 20250415
  Receipt Date: 20250415
  Transmission Date: 20250716
  Serious: Yes (Other)
  Sender: SANOFI AVENTIS
  Company Number: None

PATIENT
  Age: 33 Year
  Sex: Male
  Weight: 72 kg

DRUGS (11)
  1. PROPOFOL [Suspect]
     Active Substance: PROPOFOL
     Indication: Anaesthesia
     Dosage: 40 MG, QH
     Route: 042
     Dates: start: 20250317, end: 20250317
  2. ENOXAPARIN SODIUM [Suspect]
     Active Substance: ENOXAPARIN SODIUM
     Indication: Prophylaxis
     Dosage: 4000 IU, QD
     Route: 058
     Dates: start: 20250317, end: 20250324
  3. ACETAMINOPHEN [Suspect]
     Active Substance: ACETAMINOPHEN
     Indication: Prophylaxis
     Dosage: 1000 MG, Q8H
     Route: 042
     Dates: start: 20250317, end: 20250321
  4. MORPHINE HYDROCHLORIDE [Suspect]
     Active Substance: MORPHINE HYDROCHLORIDE
     Indication: Pain
     Dosage: 4 MG, 6ID
     Route: 042
     Dates: start: 20250317, end: 20250317
  5. FENTANYL [Suspect]
     Active Substance: FENTANYL
     Indication: Pain
     Dosage: 50 UG, QH
     Route: 042
     Dates: start: 20250316, end: 20250318
  6. MIDAZOLAM [Suspect]
     Active Substance: MIDAZOLAM
     Indication: Anaesthesia
     Dosage: 3 MG, QH
     Route: 042
     Dates: start: 20250316, end: 20250318
  7. POTASSIUM GLUCONATE [Suspect]
     Active Substance: POTASSIUM GLUCONATE
     Indication: Hypokalaemia
     Route: 048
     Dates: start: 20250319, end: 20250319
  8. NEFOPAM [Suspect]
     Active Substance: NEFOPAM
     Indication: Pain
     Route: 042
     Dates: start: 20250317, end: 20250318
  9. HUMALOG [Suspect]
     Active Substance: INSULIN LISPRO
     Indication: Product used for unknown indication
     Dosage: 2 IU, QH
     Route: 048
     Dates: start: 20250319, end: 20250320
  10. CISATRACURIUM [Suspect]
     Active Substance: CISATRACURIUM
     Indication: Anaesthesia
     Dosage: 12 MG, QD
     Route: 042
     Dates: start: 20250316, end: 20250317
  11. VITAMIN K1 [Concomitant]
     Active Substance: PHYTONADIONE
     Indication: Coagulation factor V level decreased
     Route: 042
     Dates: start: 20250318, end: 20250318

REACTIONS (1)
  - Pancreatitis acute [Recovering/Resolving]

NARRATIVE: CASE EVENT DATE: 20250319
